FAERS Safety Report 26107274 (Version 1)
Quarter: 2025Q4

REPORT INFORMATION
  Report Type: Spontaneous
  Country: US (occurrence: None)
  Receive Date: 20251127
  Receipt Date: 20251127
  Transmission Date: 20260118
  Serious: Yes (Life-Threatening, Hospitalization, Disabling, Other)
  Sender: FDA-CTU
  Company Number: None

PATIENT
  Age: 39 Year
  Sex: Male
  Weight: 77.4 kg

DRUGS (1)
  1. 7-HYDROXYMITRAGYNINE [Suspect]
     Active Substance: 7-HYDROXYMITRAGYNINE
     Indication: Pain
     Dates: start: 20250918, end: 20251119

REACTIONS (9)
  - Drug dependence [None]
  - Drug withdrawal syndrome [None]
  - Anxiety [None]
  - Hyperhidrosis [None]
  - Irritability [None]
  - Restlessness [None]
  - Insomnia [None]
  - Drug dependence [None]
  - Loss of personal independence in daily activities [None]

NARRATIVE: CASE EVENT DATE: 20251127
